FAERS Safety Report 14769576 (Version 1)
Quarter: 2018Q2

REPORT INFORMATION
  Report Type: Spontaneous
  Country: CZ (occurrence: CZ)
  Receive Date: 20180417
  Receipt Date: 20180417
  Transmission Date: 20180711
  Serious: Yes (Other)
  Sender: FDA-Public Use
  Company Number: PHHY2018CZ065261

PATIENT
  Age: 45 Year
  Sex: Female

DRUGS (4)
  1. RIVOTRIL [Concomitant]
     Active Substance: CLONAZEPAM
     Indication: PRODUCT USED FOR UNKNOWN INDICATION
     Dosage: 0.5 MG, QD
     Route: 065
  2. TRITTICO [Concomitant]
     Active Substance: TRAZODONE HYDROCHLORIDE
     Indication: PRODUCT USED FOR UNKNOWN INDICATION
     Dosage: 150 MG, QD
     Route: 065
  3. TEGRETOL [Concomitant]
     Active Substance: CARBAMAZEPINE
     Indication: PRODUCT USED FOR UNKNOWN INDICATION
     Dosage: THE DOSAGE: 1-1.
  4. GILENYA [Suspect]
     Active Substance: FINGOLIMOD HYDROCHLORIDE
     Indication: MULTIPLE SCLEROSIS
     Dosage: 0.5 MG, QW5
     Route: 065

REACTIONS (11)
  - Cough [Unknown]
  - Visual impairment [Unknown]
  - Leukopenia [Unknown]
  - Oral fungal infection [Unknown]
  - Bronchitis [Unknown]
  - Fear [Unknown]
  - Panic attack [Unknown]
  - Fatigue [Unknown]
  - Back pain [Unknown]
  - Headache [Unknown]
  - Arrhythmia [Unknown]
